FAERS Safety Report 5055810-7 (Version None)
Quarter: 2006Q3

REPORT INFORMATION
  Report Type: 
  Country: None (occurrence: None)
  Receive Date: 20060718
  Receipt Date: 20060718
  Transmission Date: 20061208
  Serious: Yes (Hospitalization)
  Sender: FDA-Public Use
  Company Number: None

PATIENT
  Age: 40 Year
  Sex: Male
  Weight: 88.1 kg

DRUGS (1)
  1. LISINOPRIL [Suspect]
     Dosage: 10 MG QD PO
     Route: 048

REACTIONS (3)
  - ANGIONEUROTIC OEDEMA [None]
  - DRUG HYPERSENSITIVITY [None]
  - REFUSAL OF TREATMENT BY PATIENT [None]
